FAERS Safety Report 14703363 (Version 1)
Quarter: 2018Q2

REPORT INFORMATION
  Report Type: Report from Study
  Country: IE (occurrence: IE)
  Receive Date: 20180402
  Receipt Date: 20180402
  Transmission Date: 20180711
  Serious: Yes (Death, Other)
  Sender: FDA-Public Use
  Company Number: IE-AMGEN-IRLSL2018043601

PATIENT
  Age: 85 Year
  Sex: Female

DRUGS (13)
  1. STEMETIL [Concomitant]
     Active Substance: PROCHLORPERAZINE MALEATE
     Dosage: 5 MG, TID
     Route: 050
  2. BURINEX [Concomitant]
     Active Substance: BUMETANIDE
     Dosage: 1 MG, QD
     Route: 050
  3. ASPIRIN. [Concomitant]
     Active Substance: ASPIRIN
     Dosage: 75 MG, QD
     Route: 050
  4. DIAMICRON [Concomitant]
     Active Substance: GLICLAZIDE
     Dosage: 30 MG, QD
     Route: 050
  5. ADENURIC [Concomitant]
     Active Substance: FEBUXOSTAT
     Dosage: 80 MG, QD
     Route: 050
  6. GALFER [Concomitant]
     Active Substance: IRON
     Dosage: 305 MG, QD
     Route: 050
  7. LEXOTAN [Concomitant]
     Active Substance: BROMAZEPAM
     Dosage: 3 MG, QD
     Route: 050
  8. ARANESP [Suspect]
     Active Substance: DARBEPOETIN ALFA
     Indication: CHRONIC KIDNEY DISEASE
     Dosage: 40 MUG, UNK
     Route: 050
     Dates: start: 20160212
  9. DUROGESIC [Concomitant]
     Active Substance: FENTANYL
     Dosage: 25 MG, 3 TIMES/WK
     Route: 050
  10. TRAJENTA [Concomitant]
     Active Substance: LINAGLIPTIN
     Dosage: 5 MG, QD
     Route: 050
  11. BISOP [Concomitant]
     Dosage: 2.5 MG, QD
     Route: 050
  12. ONE ALPHA [Concomitant]
     Active Substance: ALFACALCIDOL
     Dosage: 0.25 MG, QD
     Route: 050
  13. WARFARIN [Concomitant]
     Active Substance: WARFARIN
     Dosage: 1 MG, QD
     Route: 050

REACTIONS (1)
  - Death [Fatal]

NARRATIVE: CASE EVENT DATE: 201802
